FAERS Safety Report 9425406 (Version 1)
Quarter: 2013Q3

REPORT INFORMATION
  Report Type: Spontaneous
  Country: GB (occurrence: GB)
  Receive Date: 20130729
  Receipt Date: 20130729
  Transmission Date: 20140515
  Serious: Yes (Hospitalization, Other)
  Sender: FDA-Public Use
  Company Number: GB-TEVA-420188ISR

PATIENT
  Age: 49 Year
  Sex: Female
  Weight: 92 kg

DRUGS (6)
  1. FLUCONAZOLE [Suspect]
     Indication: SEPSIS
     Dosage: 400 MILLIGRAM DAILY;
     Route: 042
     Dates: start: 20130630, end: 20130702
  2. MEROPENEM [Suspect]
     Indication: SEPSIS
     Dosage: 3 GRAM DAILY;
     Route: 042
     Dates: start: 20130630, end: 20130702
  3. ENOXAPARIN SODIUM [Concomitant]
  4. OMEPRAZOLE [Concomitant]
  5. NYSTATIN [Concomitant]
  6. PIPERACILLIN AND TAZOBACTAM [Concomitant]

REACTIONS (2)
  - Erythema multiforme [Recovering/Resolving]
  - Rash maculo-papular [Unknown]
